FAERS Safety Report 21694841 (Version 2)
Quarter: 2022Q4

REPORT INFORMATION
  Report Type: Spontaneous
  Country: US (occurrence: US)
  Receive Date: 20221207
  Receipt Date: 20221216
  Transmission Date: 20230113
  Serious: Yes (Life-Threatening, Hospitalization, Other)
  Sender: FDA-Public Use
  Company Number: US-MLMSERVICE-20221128-3932319-1

PATIENT

DRUGS (1)
  1. PREDNISOLONE [Suspect]
     Active Substance: PREDNISOLONE
     Indication: Hepatitis alcoholic
     Dosage: 40 MG, QD

REACTIONS (4)
  - Spontaneous bacterial peritonitis [Recovered/Resolved]
  - Sepsis [Recovered/Resolved]
  - Salmonellosis [Recovered/Resolved]
  - Respiratory distress [Recovered/Resolved]
